FAERS Safety Report 4805685-3 (Version None)
Quarter: 2005Q4

REPORT INFORMATION
  Report Type: 
  Country: None (occurrence: None)
  Receive Date: 20051018
  Receipt Date: 20051006
  Transmission Date: 20060501
  Serious: Yes (Hospitalization, Disabling, Other)
  Sender: FDA-Public Use
  Company Number: USA-2003-0012149

PATIENT
  Age: 51 Year
  Sex: Male

DRUGS (13)
  1. OXYCONTIN [Suspect]
     Indication: PAIN
     Dosage: SEE IMAGE, ORAL
     Route: 048
  2. OXYCODONE HCL [Concomitant]
  3. CR TABLET [Concomitant]
  4. DURAGESIC-100 [Concomitant]
  5. PERCOCET [Concomitant]
  6. NEXIUM [Concomitant]
  7. VICODIN [Concomitant]
  8. PROTONIX [Concomitant]
  9. ATIVAN [Concomitant]
  10. TOPROL-XL [Concomitant]
  11. DARVOCET-N (DEXTROPROPOXYPHENE NAPSILATE) [Concomitant]
  12. LOPRESSOR [Concomitant]
  13. LAMISIL [Concomitant]

REACTIONS (32)
  - ACCIDENT AT WORK [None]
  - ANXIETY [None]
  - ARTHRALGIA [None]
  - BACK PAIN [None]
  - BURSITIS [None]
  - CALCULUS URETERIC [None]
  - CHEST PAIN [None]
  - CHILLS [None]
  - CHOLELITHIASIS [None]
  - CONSTIPATION [None]
  - DEPRESSION [None]
  - DISTURBANCE IN ATTENTION [None]
  - DRUG DEPENDENCE [None]
  - DRUG WITHDRAWAL SYNDROME [None]
  - DYSPEPSIA [None]
  - FALL [None]
  - FATIGUE [None]
  - FLANK PAIN [None]
  - HAEMORRHAGE [None]
  - HYDRONEPHROSIS [None]
  - HYPERTENSION [None]
  - HYPOKINESIA [None]
  - INADEQUATE ANALGESIA [None]
  - LACRIMATION INCREASED [None]
  - MENTAL DISORDER [None]
  - ONYCHOMYCOSIS [None]
  - PAIN IN EXTREMITY [None]
  - POST INFLAMMATORY PIGMENTATION CHANGE [None]
  - SKIN LACERATION [None]
  - SLEEP DISORDER [None]
  - TENDERNESS [None]
  - TENDON INJURY [None]
